FAERS Safety Report 5863596-9 (Version None)
Quarter: 2008Q3

REPORT INFORMATION
  Report Type: 
  Country: None (occurrence: None)
  Receive Date: 20080828
  Receipt Date: 20080818
  Transmission Date: 20090109
  Serious: Yes (Hospitalization, Other)
  Sender: FDA-Public Use
  Company Number: US-PFIZER INC-2006127166

PATIENT
  Sex: Female
  Weight: 63.5 kg

DRUGS (7)
  1. CELEBREX [Suspect]
     Indication: ILL-DEFINED DISORDER
  2. CELEBREX [Suspect]
     Indication: HEADACHE
  3. NEURONTIN [Concomitant]
     Dates: start: 20020101, end: 20041001
  4. ASPIRIN [Concomitant]
     Dates: start: 20020101, end: 20041001
  5. BEXTRA [Concomitant]
     Dates: start: 20020101, end: 20041001
  6. VIOXX [Concomitant]
     Dates: start: 20020101, end: 20041001
  7. VOLTAREN [Concomitant]
     Dates: start: 20020101, end: 20041001

REACTIONS (10)
  - BLINDNESS [None]
  - CONSTIPATION [None]
  - DIARRHOEA [None]
  - GASTROOESOPHAGEAL REFLUX DISEASE [None]
  - HEADACHE [None]
  - HYPERTENSION [None]
  - INSOMNIA [None]
  - MUSCLE SPASMS [None]
  - PAIN IN EXTREMITY [None]
  - TREMOR [None]
